FAERS Safety Report 9754638 (Version 1)
Quarter: 2013Q4

REPORT INFORMATION
  Report Type: Spontaneous
  Country: US (occurrence: US)
  Receive Date: 20131213
  Receipt Date: 20131213
  Transmission Date: 20140711
  Serious: No
  Sender: FDA-Public Use
  Company Number: US-GLAXOSMITHKLINE-A1003170A

PATIENT
  Age: 43 Year
  Sex: Female

DRUGS (3)
  1. WALGREENS NICOTINE TRANSDERMAL SYSTEM PATCH CLEAR, 21MG [Suspect]
     Indication: EX-TOBACCO USER
     Dates: start: 20121115
  2. NICORETTE NICOTINE POLACRILEX MINT LOZENGE, 4MG [Suspect]
     Indication: EX-TOBACCO USER
     Dates: start: 20121115
  3. WALGREENS NICOTINE TRANSDERMAL SYSTEM PATCH CLEAR, 14MG [Suspect]
     Indication: EX-TOBACCO USER
     Dates: start: 20121121

REACTIONS (4)
  - Drug administration error [Unknown]
  - Expired drug administered [Unknown]
  - Nicotine dependence [Not Recovered/Not Resolved]
  - Drug ineffective [Not Recovered/Not Resolved]
